FAERS Safety Report 25492885 (Version 1)
Quarter: 2025Q2

REPORT INFORMATION
  Report Type: Spontaneous
  Country: SE (occurrence: SE)
  Receive Date: 20250630
  Receipt Date: 20250630
  Transmission Date: 20250717
  Serious: Yes (Hospitalization)
  Sender: ORGANON
  Company Number: None

PATIENT
  Age: 28 Year
  Sex: Female

DRUGS (3)
  1. MIRTAZAPINE [Suspect]
     Active Substance: MIRTAZAPINE
     Route: 048
     Dates: start: 20190714, end: 20190714
  2. SERTRALINE [Suspect]
     Active Substance: SERTRALINE HYDROCHLORIDE
     Route: 048
     Dates: start: 20190714, end: 20190714
  3. PROPIOMAZINE [Suspect]
     Active Substance: PROPIOMAZINE
     Route: 048
     Dates: start: 20190714, end: 20190714

REACTIONS (4)
  - Fatigue [Unknown]
  - Suicide attempt [Unknown]
  - Formication [Unknown]
  - Intentional overdose [Unknown]

NARRATIVE: CASE EVENT DATE: 20190714
